FAERS Safety Report 6655095-1 (Version None)
Quarter: 2010Q1

REPORT INFORMATION
  Report Type: 
  Country: None (occurrence: None)
  Receive Date: 20100329
  Receipt Date: 20100322
  Transmission Date: 20100710
  Serious: Yes (Death, Hospitalization)
  Sender: FDA-Public Use
  Company Number: FR-CELGENEUS-056-21880-09102188

PATIENT
  Sex: Female
  Weight: 71 kg

DRUGS (15)
  1. REVLIMID [Suspect]
     Indication: OVARIAN CANCER
     Route: 048
     Dates: start: 20091014, end: 20091024
  2. CARBOPLATIN [Suspect]
     Indication: OVARIAN CANCER
     Route: 065
     Dates: start: 20100120
  3. CARBOPLATIN [Suspect]
     Route: 065
     Dates: start: 20091014, end: 20091014
  4. CAELYX [Suspect]
     Indication: OVARIAN CANCER
     Route: 065
     Dates: start: 20100120
  5. CAELYX [Suspect]
     Route: 065
     Dates: start: 20091014, end: 20091014
  6. KARDEGIC [Concomitant]
     Indication: DRUG USE FOR UNKNOWN INDICATION
     Route: 065
  7. FLUOXETINE [Concomitant]
     Indication: DRUG USE FOR UNKNOWN INDICATION
     Route: 065
     Dates: start: 20050101
  8. BROMAZEPAM [Concomitant]
     Indication: DRUG USE FOR UNKNOWN INDICATION
     Route: 065
     Dates: start: 20050101
  9. NEXIUM [Concomitant]
     Indication: DRUG USE FOR UNKNOWN INDICATION
     Route: 065
     Dates: start: 20050101
  10. PERFALGAN [Concomitant]
     Indication: DRUG USE FOR UNKNOWN INDICATION
     Route: 065
     Dates: start: 20050101
  11. SPASFON [Concomitant]
     Indication: DRUG USE FOR UNKNOWN INDICATION
     Route: 065
  12. CONTRAMAL [Concomitant]
     Indication: DRUG USE FOR UNKNOWN INDICATION
     Route: 065
  13. MOTILIUM [Concomitant]
     Indication: DRUG USE FOR UNKNOWN INDICATION
     Route: 065
     Dates: start: 20050101
  14. ACETAMINOPHEN W/ PROPOXYPHENE HCL [Concomitant]
     Indication: DRUG USE FOR UNKNOWN INDICATION
     Route: 065
     Dates: start: 20050101
  15. CA-125 [Concomitant]
     Indication: DRUG USE FOR UNKNOWN INDICATION
     Route: 065
     Dates: start: 20091114

REACTIONS (1)
  - SUBILEUS [None]
